FAERS Safety Report 10258554 (Version 1)
Quarter: 2014Q2

REPORT INFORMATION
  Report Type: Spontaneous
  Country: US (occurrence: None)
  Receive Date: 20140624
  Receipt Date: 20140624
  Transmission Date: 20141212
  Serious: No
  Sender: FDA-Public Use
  Company Number: None

PATIENT
  Age: 36 Year
  Sex: Female

DRUGS (5)
  1. TECFIDERA [Suspect]
     Indication: MULTIPLE SCLEROSIS
     Route: 048
     Dates: start: 201402
  2. AMPYRA [Concomitant]
  3. BACLOFEN [Concomitant]
  4. OXYBUTYNIN [Concomitant]
  5. CYCLOBENZAPRINE [Concomitant]

REACTIONS (1)
  - Abdominal distension [None]
